FAERS Safety Report 8281738-5 (Version None)
Quarter: 2012Q2

REPORT INFORMATION
  Report Type: 
  Country: None (occurrence: None)
  Receive Date: 20120410
  Receipt Date: 20120328
  Transmission Date: 20120825
  Serious: Yes (Hospitalization)
  Sender: FDA-Public Use
  Company Number: TCI2012A00538

PATIENT
  Age: 85 Year
  Sex: Female

DRUGS (9)
  1. ATELEC (CILNIDIPINE) [Concomitant]
  2. LASIX [Concomitant]
  3. HALFDIGOXIN KY (DIGOXIN) [Concomitant]
  4. ALDACTONE [Concomitant]
  5. MEROPENEM [Concomitant]
  6. LANSOPRAZOLE [Suspect]
     Indication: GASTRIC ULCER
     Dosage: 15 MG (15 MG,1 IN 1 D) PER ORAL ; 15 MG (15 MG,1 IN 1 D) PER ORAL
     Route: 048
     Dates: end: 20120114
  7. LANSOPRAZOLE [Suspect]
     Indication: GASTRIC ULCER
     Dosage: 15 MG (15 MG,1 IN 1 D) PER ORAL ; 15 MG (15 MG,1 IN 1 D) PER ORAL
     Route: 048
     Dates: start: 20120117, end: 20120119
  8. OLMESARTAN MEDOXOMIL [Concomitant]
  9. WARFARIN SODIUM [Concomitant]

REACTIONS (24)
  - ASPARTATE AMINOTRANSFERASE INCREASED [None]
  - CARDIOMEGALY [None]
  - TRICUSPID VALVE INCOMPETENCE [None]
  - VERTEBRAL ARTERY OCCLUSION [None]
  - DIZZINESS [None]
  - DILATATION ATRIAL [None]
  - ARTERIOSCLEROSIS [None]
  - PALPITATIONS [None]
  - HAEMATURIA [None]
  - HAEMODIALYSIS [None]
  - PULMONARY GRANULOMA [None]
  - GALLBLADDER POLYP [None]
  - MITRAL VALVE PROLAPSE [None]
  - DEEP VEIN THROMBOSIS [None]
  - BRADYCARDIA [None]
  - AORTIC STENOSIS [None]
  - MITRAL VALVE INCOMPETENCE [None]
  - GASTRIC POLYPS [None]
  - GASTRITIS ATROPHIC [None]
  - GASTROOESOPHAGEAL REFLUX DISEASE [None]
  - VASCULAR CALCIFICATION [None]
  - TUBULOINTERSTITIAL NEPHRITIS [None]
  - HAEMOLYTIC ANAEMIA [None]
  - SINUSITIS [None]
